FAERS Safety Report 4424024-3 (Version None)
Quarter: 2004Q3

REPORT INFORMATION
  Report Type: 
  Country: None (occurrence: None)
  Receive Date: 20040809
  Receipt Date: 20040726
  Transmission Date: 20050211
  Serious: Yes (Hospitalization)
  Sender: FDA-Public Use
  Company Number: 2004039732

PATIENT
  Age: 47 Year
  Sex: Male
  Weight: 95 kg

DRUGS (3)
  1. TAHOR (ATORVASTATIN) [Suspect]
     Indication: HYPERCHOLESTEROLAEMIA
     Dosage: 40 MG (40 MG, 1 IN 1 D), ORAL
     Route: 048
     Dates: start: 20010801, end: 20040613
  2. LANSOPRAZOLE [Suspect]
     Indication: DUODENAL ULCER
     Dosage: 15 MG (15 MG, 1 IN 1D), ORAL
     Route: 048
  3. ALLOPURINOL [Suspect]
     Indication: HYPERURICAEMIA
     Dosage: 300 MG (300 MG, 1 IN 1 D), ORAL
     Route: 048

REACTIONS (1)
  - TENDON RUPTURE [None]
